FAERS Safety Report 23100323 (Version 1)
Quarter: 2023Q4

REPORT INFORMATION
  Report Type: Spontaneous
  Country: FR (occurrence: FR)
  Receive Date: 20231024
  Receipt Date: 20231024
  Transmission Date: 20240110
  Serious: Yes (Hospitalization)
  Sender: FDA-Public Use
  Company Number: None

PATIENT
  Age: 10 Year
  Sex: Female
  Weight: 19 kg

DRUGS (9)
  1. VALIUM [Suspect]
     Active Substance: DIAZEPAM
     Indication: Product administration error
     Dosage: VALIUM 10MG/ML 4 GOUTTES; IN TOTAL
     Route: 050
     Dates: start: 20230906, end: 20230906
  2. TRAMADOL HYDROCHLORIDE [Suspect]
     Active Substance: TRAMADOL HYDROCHLORIDE
     Indication: Product administration error
     Dosage: TOPALGIC 100MG/ML 2 GOUTTES; IN TOTAL
     Route: 050
     Dates: start: 20230906, end: 20230906
  3. ZUCLOPENTHIXOL [Suspect]
     Active Substance: ZUCLOPENTHIXOL
     Indication: Product administration error
     Dosage: CLOPIXOL  10 GOUTTES; IN TOTAL
     Route: 050
     Dates: start: 20230906, end: 20230906
  4. FORLAX 4 g, poudre pour solution buvable en sachet-dose [Concomitant]
     Indication: Product used for unknown indication
     Dosage: FORLAX 4G 2 SACHETS/JOUR
     Route: 050
  5. BACLOFEN [Concomitant]
     Active Substance: BACLOFEN
     Indication: Product used for unknown indication
     Dosage: BACLOFENE 5MG 2X/JOUR MATIN ET SOIR
     Route: 050
  6. PRIMPERAN [Concomitant]
     Active Substance: METOCLOPRAMIDE HYDROCHLORIDE
     Indication: Product used for unknown indication
     Dosage: PRIMPERAN 2.5 ML 3X/JOUR
     Route: 050
  7. CLOBAZAM [Concomitant]
     Active Substance: CLOBAZAM
     Indication: Product used for unknown indication
     Dosage: URBANYL 5MG 1X/JOUR
     Route: 050
  8. KEPPRA [Concomitant]
     Active Substance: LEVETIRACETAM
     Indication: Product used for unknown indication
     Dosage: KEPPRA 500 MG 2 X/JOUR MATIN ET SOIR
     Route: 050
  9. ATARAX, sirop [Concomitant]
     Indication: Product used for unknown indication
     Dosage: ATARAX 5ML 1X/JOUR
     Route: 050

REACTIONS (4)
  - Somnolence [Recovered/Resolved]
  - Hypoxia [Recovered/Resolved]
  - Sinus tachycardia [Recovered/Resolved]
  - Wrong product administered [Recovered/Resolved]

NARRATIVE: CASE EVENT DATE: 20230906
